FAERS Safety Report 8544870-4 (Version None)
Quarter: 2012Q3

REPORT INFORMATION
  Report Type: 
  Country: None (occurrence: None)
  Receive Date: 20120727
  Receipt Date: 20120718
  Transmission Date: 20120928
  Serious: Yes (Other)
  Sender: FDA-Public Use
  Company Number: US-ELI_LILLY_AND_COMPANY-US201101004119

PATIENT
  Sex: Female

DRUGS (9)
  1. FORTEO [Suspect]
     Dosage: 20 UG, DAILY (1/D)
     Dates: start: 20110114
  2. FORTEO [Suspect]
     Indication: OSTEOPOROSIS
     Dosage: 20 UG, DAILY (1/D)
     Dates: start: 20110114
  3. CYMBALTA [Concomitant]
     Indication: ARTHRALGIA
     Dates: start: 20110214
  4. CRESTOR [Concomitant]
     Dosage: UNK
  5. ASPIRIN [Concomitant]
     Dosage: 650 MG, QD
  6. NEURONTIN [Concomitant]
     Dosage: UNK
  7. AGGRENOX [Concomitant]
     Dosage: UNK
  8. FOLTX [Concomitant]
     Dosage: UNK
  9. OMEPRAZOLE [Concomitant]

REACTIONS (11)
  - CEREBROVASCULAR ACCIDENT [None]
  - HYPOAESTHESIA [None]
  - ABASIA [None]
  - NEPHROLITHIASIS [None]
  - MULTIPLE SCLEROSIS [None]
  - HEMIPARESIS [None]
  - MYALGIA [None]
  - GRIP STRENGTH DECREASED [None]
  - GASTRIC DISORDER [None]
  - DYSARTHRIA [None]
  - TRANSIENT ISCHAEMIC ATTACK [None]
